FAERS Safety Report 7725160-6 (Version None)
Quarter: 2011Q3

REPORT INFORMATION
  Report Type: 
  Country: None (occurrence: None)
  Receive Date: 20110901
  Receipt Date: 20110831
  Transmission Date: 20111222
  Serious: Yes (Life-Threatening, Hospitalization)
  Sender: FDA-Public Use
  Company Number: FR-MERCK-1108FRA00103

PATIENT
  Age: 13 Year
  Sex: Male

DRUGS (5)
  1. SINGULAIR [Suspect]
     Indication: ASTHMA
     Route: 048
     Dates: start: 20100801, end: 20110706
  2. ALBUTEROL SULFATE [Concomitant]
     Indication: ASTHMA
     Route: 055
  3. FLUTICASONE FUROATE [Concomitant]
     Route: 055
  4. PREDNISOLONE SODIUM METAZOATE [Suspect]
     Indication: SINUSITIS
     Route: 048
     Dates: start: 20110613, end: 20110622
  5. BUDESONIDE AND FORMOTEROL FUMARATE [Concomitant]
     Indication: ASTHMA
     Route: 055

REACTIONS (2)
  - DYSPNOEA [None]
  - ALLERGIC GRANULOMATOUS ANGIITIS [None]
